FAERS Safety Report 4873099-6 (Version None)
Quarter: 2006Q1

REPORT INFORMATION
  Report Type: 
  Country: None (occurrence: None)
  Receive Date: 20060104
  Receipt Date: 20060104
  Transmission Date: 20060701
  Serious: Yes (Life-Threatening)
  Sender: FDA-Public Use
  Company Number: None

PATIENT
  Age: 28 Year
  Sex: Female
  Weight: 60.4 kg

DRUGS (1)
  1. COCAINE [Suspect]
     Dosage: X1
     Dates: start: 20050727, end: 20050727

REACTIONS (3)
  - DRUG SCREEN POSITIVE [None]
  - LOSS OF CONSCIOUSNESS [None]
  - OVERDOSE [None]
